FAERS Safety Report 7957451-8 (Version None)
Quarter: 2011Q4

REPORT INFORMATION
  Report Type: 
  Country: None (occurrence: None)
  Receive Date: 20111130
  Receipt Date: 20111124
  Transmission Date: 20120403
  Serious: Yes (Hospitalization)
  Sender: FDA-Public Use
  Company Number: SP04700

PATIENT
  Age: 80 Year
  Sex: Female

DRUGS (2)
  1. SODIUM PICOSULFATE HYDRATE [Concomitant]
  2. VISICOL [Suspect]
     Indication: BOWEL PREPARATION
     Dosage: (10 GM), ORAL
     Route: 048
     Dates: start: 20110907, end: 20110907

REACTIONS (3)
  - TETANY [None]
  - BLOOD PHOSPHORUS INCREASED [None]
  - BLOOD CALCIUM DECREASED [None]
